FAERS Safety Report 20846424 (Version 1)
Quarter: 2022Q2

REPORT INFORMATION
  Report Type: Spontaneous
  Country: AU (occurrence: AU)
  Receive Date: 20220518
  Receipt Date: 20220518
  Transmission Date: 20220721
  Serious: Yes (Death, Hospitalization, Other)
  Sender: FDA-Public Use
  Company Number: AU-SA-SAC20220516000691

PATIENT
  Age: 50 Year
  Sex: Male

DRUGS (2)
  1. ENOXAPARIN SODIUM [Suspect]
     Active Substance: ENOXAPARIN SODIUM
     Dosage: UNK
     Dates: end: 20211107
  2. WARFARIN SODIUM [Suspect]
     Active Substance: WARFARIN SODIUM
     Dosage: UNK
     Dates: end: 20211107

REACTIONS (11)
  - Abdominal distension [Fatal]
  - Abdominal mass [Fatal]
  - Abdominal pain lower [Fatal]
  - Adverse drug reaction [Fatal]
  - Blood lactic acid increased [Fatal]
  - Haemoglobin decreased [Fatal]
  - Hypotension [Fatal]
  - Medication error [Fatal]
  - Organ failure [Fatal]
  - Retroperitoneal haematoma [Fatal]
  - Pre-existing disease [Unknown]

NARRATIVE: CASE EVENT DATE: 20211104
